FAERS Safety Report 6324626-3 (Version None)
Quarter: 2009Q3

REPORT INFORMATION
  Report Type: 
  Country: None (occurrence: None)
  Receive Date: 20090824
  Receipt Date: 20090506
  Transmission Date: 20100115
  Serious: No
  Sender: FDA-Public Use
  Company Number: US-ABBOTT-09P-163-0572183-00

PATIENT
  Sex: Female

DRUGS (2)
  1. NIASPAN [Suspect]
     Indication: BLOOD CHOLESTEROL
     Dosage: 1 IN 1 DAY CUT TABLET IN HALF
  2. NIASPAN [Suspect]

REACTIONS (2)
  - FEELING HOT [None]
  - WRONG TECHNIQUE IN DRUG USAGE PROCESS [None]
